FAERS Safety Report 23662292 (Version 3)
Quarter: 2024Q2

REPORT INFORMATION
  Report Type: Spontaneous
  Country: US (occurrence: US)
  Receive Date: 20240322
  Receipt Date: 20240513
  Transmission Date: 20240716
  Serious: No
  Sender: FDA-Public Use
  Company Number: US-PFIZER INC-202400069790

PATIENT
  Age: 2 Year
  Sex: Male
  Weight: 11.4 kg

DRUGS (4)
  1. SOMATROPIN [Suspect]
     Active Substance: SOMATROPIN
     Indication: Growth hormone deficiency
     Dosage: 0.4 MG, DAILY
  2. SOMATROPIN [Suspect]
     Active Substance: SOMATROPIN
     Dosage: 0.6 MG
     Route: 058
     Dates: start: 20230315
  3. AQUAPHOR HEALING [Concomitant]
     Active Substance: PETROLATUM
     Indication: Dry skin
     Dosage: AQUAPHOR TO CHEEKS HS
  4. HYDROCORTISONE [Concomitant]
     Active Substance: HYDROCORTISONE
     Indication: Eczema
     Dosage: HYDROCORTISONE 1% CREAM TO AFFECTED SKIN PRN

REACTIONS (1)
  - Injection site discomfort [Recovered/Resolved]
